FAERS Safety Report 11952537 (Version 1)
Quarter: 2016Q1

REPORT INFORMATION
  Report Type: Spontaneous
  Country: US (occurrence: US)
  Receive Date: 20160125
  Receipt Date: 20160125
  Transmission Date: 20160526
  Serious: Yes (Other)
  Sender: FDA-Public Use
  Company Number: US-VALIDUS PHARMACEUTICALS LLC-US-2016VAL000083

PATIENT
  Age: 53 Year
  Sex: Male

DRUGS (1)
  1. BROMOCRIPTINE MESYLATE [Suspect]
     Active Substance: BROMOCRIPTINE MESYLATE
     Indication: PROLACTINOMA
     Dosage: 2.5 MG, QHS (BEFORE BED TIME)
     Dates: start: 19920925

REACTIONS (4)
  - Schizophrenia [Recovered/Resolved]
  - Hallucination, auditory [Recovered/Resolved]
  - Abnormal behaviour [Recovered/Resolved]
  - Fear of death [Recovered/Resolved]

NARRATIVE: CASE EVENT DATE: 19920929
